FAERS Safety Report 25252675 (Version 5)
Quarter: 2025Q4

REPORT INFORMATION
  Report Type: Spontaneous
  Country: US (occurrence: US)
  Receive Date: 20250429
  Receipt Date: 20251224
  Transmission Date: 20260117
  Serious: No
  Sender: TRAVERE THERAPEUTICS
  Company Number: US-TRAVERE-2025TVT00454

PATIENT
  Age: 21 Year
  Sex: Female

DRUGS (6)
  1. FILSPARI [Suspect]
     Active Substance: SPARSENTAN
     Indication: IgA nephropathy
     Route: 048
     Dates: start: 202501
  2. FILSPARI [Suspect]
     Active Substance: SPARSENTAN
     Route: 048
     Dates: start: 20250123, end: 20250415
  3. FILSPARI [Suspect]
     Active Substance: SPARSENTAN
     Route: 048
     Dates: start: 202506, end: 20250707
  4. FILSPARI [Suspect]
     Active Substance: SPARSENTAN
     Route: 048
  5. AZATHIOPRINE [Suspect]
     Active Substance: AZATHIOPRINE
     Indication: Rheumatoid arthritis
  6. ENTYVIO [Suspect]
     Active Substance: VEDOLIZUMAB
     Indication: Inflammatory bowel disease

REACTIONS (10)
  - Dizziness [Recovering/Resolving]
  - Paraesthesia [Recovering/Resolving]
  - Limb discomfort [Recovering/Resolving]
  - Haemoglobin decreased [None]
  - White blood cell count decreased [None]
  - Dyspnoea [Recovering/Resolving]
  - Neutrophil count decreased [None]
  - Feeling abnormal [Unknown]
  - Fatigue [Unknown]
  - Drug effect less than expected [Unknown]

NARRATIVE: CASE EVENT DATE: 20250401
